FAERS Safety Report 8393318-1 (Version None)
Quarter: 2012Q2

REPORT INFORMATION
  Report Type: 
  Country: None (occurrence: None)
  Receive Date: 20120529
  Receipt Date: 20120518
  Transmission Date: 20120825
  Serious: Yes (Hospitalization, Other)
  Sender: FDA-Public Use
  Company Number: US-JNJFOC-20120516838

PATIENT
  Sex: Male
  Weight: 90.1 kg

DRUGS (27)
  1. FOLIC ACID [Concomitant]
  2. PEPCID [Concomitant]
  3. SEVOFLURANE [Concomitant]
  4. TYLENOL [Concomitant]
  5. ALL OTHER THERAPEUTICS [Concomitant]
  6. GLYCOPYRROLATE [Concomitant]
  7. MESALAMINE [Concomitant]
  8. LACTATED RINGER'S [Concomitant]
  9. ZOSYN [Concomitant]
  10. MORPHINE [Concomitant]
  11. ROCURONIUM BROMIDE [Concomitant]
  12. LISINOPRIL [Concomitant]
  13. ZOFRAN [Concomitant]
  14. FENTANYL-100 [Concomitant]
  15. TORADOL [Concomitant]
  16. HYDROMORPHONE HCL [Concomitant]
  17. SODIUM CHLORIDE [Concomitant]
  18. IRON [Concomitant]
  19. NEOSTIGMINE [Concomitant]
  20. REMICADE [Suspect]
     Indication: CROHN'S DISEASE
     Route: 042
     Dates: start: 20110401
  21. PREDNISONE [Concomitant]
  22. OXYCODONE HCL [Concomitant]
  23. BENADRYL [Concomitant]
  24. PROPOFOL [Concomitant]
  25. DEXMEDETOMODINE HYDROCHLORIDE [Concomitant]
  26. LIDOCAINE [Concomitant]
  27. MIDAZOLAM [Concomitant]

REACTIONS (2)
  - CROHN'S DISEASE [None]
  - POSTOPERATIVE ILEUS [None]
